FAERS Safety Report 5779345-9 (Version None)
Quarter: 2008Q2

REPORT INFORMATION
  Report Type: 
  Country: None (occurrence: None)
  Receive Date: 20080619
  Receipt Date: 20080602
  Transmission Date: 20081010
  Serious: No
  Sender: FDA-Public Use
  Company Number: US-BOEHRINGER INGELHEIM GMBH, GERMANY-2008-BP-09015BP

PATIENT
  Age: 46 Year
  Sex: Male

DRUGS (1)
  1. FLOMAX [Suspect]
     Indication: MICTURITION DISORDER

REACTIONS (1)
  - DIZZINESS [None]
